FAERS Safety Report 20065575 (Version 1)
Quarter: 2021Q4

REPORT INFORMATION
  Report Type: Report from Study
  Country: BR (occurrence: BR)
  Receive Date: 20211113
  Receipt Date: 20211113
  Transmission Date: 20220303
  Serious: Yes (Other)
  Sender: FDA-Public Use
  Company Number: BR-NOVARTISPH-NVSC2021BR105585

PATIENT
  Age: 54 Year
  Sex: Male

DRUGS (4)
  1. COSENTYX [Suspect]
     Active Substance: SECUKINUMAB
     Indication: Psoriatic arthropathy
     Dosage: 300 MG, UNKNOWN (2 INJECTIONS (300 MG))
     Route: 065
     Dates: start: 20210403
  2. COSENTYX [Suspect]
     Active Substance: SECUKINUMAB
     Dosage: UNK, (LOADING DOSE)
     Route: 065
  3. COSENTYX [Suspect]
     Active Substance: SECUKINUMAB
     Dosage: UNK UNK, QMO
     Route: 065
  4. NIMESULIDE [Suspect]
     Active Substance: NIMESULIDE
     Indication: Tonsillitis
     Dosage: UNK, (START DATE WAS AFTER 1 WEEK AND A HALF)
     Route: 065

REACTIONS (18)
  - Poisoning [Unknown]
  - Fatigue [Recovering/Resolving]
  - Tonsillitis [Recovering/Resolving]
  - Tonsillar inflammation [Recovering/Resolving]
  - Dysphagia [Unknown]
  - Sleep disorder [Recovering/Resolving]
  - Discomfort [Recovering/Resolving]
  - Vision blurred [Recovering/Resolving]
  - Tremor [Recovering/Resolving]
  - Tachycardia [Recovering/Resolving]
  - Feeling abnormal [Recovering/Resolving]
  - Abdominal discomfort [Unknown]
  - Hiatus hernia [Unknown]
  - Eating disorder [Unknown]
  - Reflux gastritis [Unknown]
  - Gastrooesophageal reflux disease [Unknown]
  - Asthenia [Recovering/Resolving]
  - Fear [Unknown]

NARRATIVE: CASE EVENT DATE: 20210504
